FAERS Safety Report 9222679 (Version 2)
Quarter: 2013Q2

REPORT INFORMATION
  Report Type: Report from Study
  Country: FR (occurrence: FR)
  Receive Date: 20130410
  Receipt Date: 20130513
  Transmission Date: 20140414
  Serious: Yes (Other)
  Sender: FDA-Public Use
  Company Number: FR-ROCHE-1208866

PATIENT
  Age: 77 Year
  Sex: 0

DRUGS (2)
  1. ALTEPLASE [Suspect]
     Indication: RETINAL HAEMORRHAGE
     Route: 031
  2. SULFUR HEXAFLUORIDE [Suspect]
     Indication: RETINAL HAEMORRHAGE
     Route: 031

REACTIONS (2)
  - Hyphaema [Recovered/Resolved]
  - Ocular hypertension [Recovered/Resolved]
